FAERS Safety Report 9465721 (Version 1)
Quarter: 2013Q3

REPORT INFORMATION
  Report Type: Spontaneous
  Country: US (occurrence: US)
  Receive Date: 20130820
  Receipt Date: 20130820
  Transmission Date: 20140515
  Serious: Yes (Hospitalization)
  Sender: FDA-Public Use
  Company Number: US-SANOFI-AVENTIS-2013SA082442

PATIENT
  Age: 53 Year
  Sex: Female
  Weight: 77.11 kg

DRUGS (5)
  1. DEMEROL [Suspect]
     Indication: PAIN
     Route: 065
  2. LYRICA [Suspect]
     Indication: FIBROMYALGIA
     Route: 048
     Dates: start: 201206
  3. ASPIRIN [Suspect]
     Indication: PAIN
     Route: 065
  4. SYNTHROID [Concomitant]
     Indication: THYROID DISORDER
     Route: 065
  5. NORVASC [Concomitant]
     Indication: HEART RATE IRREGULAR
     Route: 065

REACTIONS (9)
  - Malaise [Recovered/Resolved]
  - Rhinitis [Recovered/Resolved]
  - Road traffic accident [Unknown]
  - Visual impairment [Unknown]
  - Mobility decreased [Unknown]
  - Myopia [Unknown]
  - Drug hypersensitivity [Unknown]
  - Muscle disorder [Unknown]
  - Drug ineffective [Unknown]
